FAERS Safety Report 15213064 (Version 1)
Quarter: 2018Q3

REPORT INFORMATION
  Report Type: Spontaneous
  Country: NL (occurrence: NL)
  Receive Date: 20180730
  Receipt Date: 20180730
  Transmission Date: 20181010
  Serious: Yes (Hospitalization, Other)
  Sender: FDA-Public Use
  Company Number: NL-INVENTIA-000240

PATIENT
  Age: 68 Year
  Sex: Female

DRUGS (5)
  1. CARBASALATE [Concomitant]
     Active Substance: CARBASPIRIN
  2. CAPTOPRIL. [Concomitant]
     Active Substance: CAPTOPRIL
  3. METFORMIN [Suspect]
     Active Substance: METFORMIN HYDROCHLORIDE
     Indication: PRODUCT USED FOR UNKNOWN INDICATION
  4. CIPROFLOXACIN. [Concomitant]
     Active Substance: CIPROFLOXACIN
     Indication: URINARY TRACT INFECTION
  5. METOPROLOL. [Concomitant]
     Active Substance: METOPROLOL

REACTIONS (3)
  - Shock [Unknown]
  - Renal failure [Unknown]
  - Lactic acidosis [Unknown]
